FAERS Safety Report 4636347-3 (Version None)
Quarter: 2005Q2

REPORT INFORMATION
  Report Type: 
  Country: None (occurrence: None)
  Receive Date: 20050415
  Receipt Date: 20041221
  Transmission Date: 20051028
  Serious: Yes (Other)
  Sender: FDA-Public Use
  Company Number: US-BRISTOL-MYERS SQUIBB COMPANY-12803920

PATIENT
  Age: 56 Year
  Sex: Female
  Weight: 78 kg

DRUGS (20)
  1. CARBOPLATIN [Suspect]
     Indication: BREAST CANCER
     Dosage: INITIAL COURSE BEGAN ON 09-JUN-2004.
     Route: 042
     Dates: start: 20041217, end: 20041217
  2. TAXOTERE [Concomitant]
     Indication: BREAST CANCER
     Dates: start: 20040609
  3. HERCEPTIN [Concomitant]
     Indication: BREAST CANCER
     Dates: start: 20040609
  4. DECADRON [Concomitant]
     Route: 042
  5. ALOXI [Concomitant]
  6. TAMOXIFEN CITRATE [Concomitant]
  7. FEMARA [Concomitant]
  8. ZOMETA [Concomitant]
     Route: 042
  9. SYNTHROID [Concomitant]
  10. CLONIDINE [Concomitant]
  11. DARVOCET-N 100 [Concomitant]
  12. COLACE [Concomitant]
  13. DULCOLAX [Concomitant]
  14. IMODIUM [Concomitant]
  15. AXID [Concomitant]
  16. M.V.I. [Concomitant]
  17. POTASSIUM GLUCONATE TAB [Concomitant]
  18. VITAMIN B COMPLEX CAP [Concomitant]
  19. CALCIUM + VITAMIN D [Concomitant]
  20. OMEGA-3 [Concomitant]

REACTIONS (1)
  - HYPERSENSITIVITY [None]
